FAERS Safety Report 4501312-3 (Version None)
Quarter: 2004Q4

REPORT INFORMATION
  Report Type: 
  Country: None (occurrence: None)
  Receive Date: 20041110
  Receipt Date: 20041101
  Transmission Date: 20050328
  Serious: Yes (Hospitalization)
  Sender: FDA-Public Use
  Company Number: 2004242159FR

PATIENT
  Age: 62 Year
  Sex: Female

DRUGS (4)
  1. VANTIN [Suspect]
     Indication: PYREXIA
     Dosage: ORAL
     Route: 048
     Dates: start: 20041001, end: 20041015
  2. ACETAMINOPHEN [Suspect]
     Indication: PYREXIA
  3. AMOXICILLIN [Concomitant]
  4. CIFLOX [Concomitant]

REACTIONS (10)
  - EYE REDNESS [None]
  - GENITAL DISORDER FEMALE [None]
  - HEARING IMPAIRED [None]
  - LOCALISED SKIN REACTION [None]
  - MUCOUS MEMBRANE DISORDER [None]
  - SCAB [None]
  - SKIN BLEEDING [None]
  - VISION BLURRED [None]
  - VISUAL DISTURBANCE [None]
  - VOMITING [None]
